FAERS Safety Report 4803431-0 (Version None)
Quarter: 2005Q4

REPORT INFORMATION
  Report Type: 
  Country: None (occurrence: None)
  Receive Date: 20051014
  Receipt Date: 20051007
  Transmission Date: 20060501
  Serious: Yes (Other)
  Sender: FDA-Public Use
  Company Number: HQWYE930007OCT05

PATIENT
  Sex: Male

DRUGS (1)
  1. CORDARONE [Suspect]
     Dosage: 200 MG 1X PER 1 DAY
     Dates: end: 20050101

REACTIONS (3)
  - HYPERTHYROIDISM [None]
  - HYPOAESTHESIA [None]
  - PARAESTHESIA [None]
